FAERS Safety Report 18364852 (Version 2)
Quarter: 2020Q4

REPORT INFORMATION
  Report Type: Spontaneous
  Country: GB (occurrence: GB)
  Receive Date: 20201009
  Receipt Date: 20201228
  Transmission Date: 20210114
  Serious: Yes (Hospitalization)
  Sender: FDA-Public Use
  Company Number: GB-ASTRAZENECA-2020SF26781

PATIENT
  Age: 42 Year
  Sex: Female
  Weight: 135 kg

DRUGS (1)
  1. BENRALIZUMAB. [Suspect]
     Active Substance: BENRALIZUMAB
     Indication: ASTHMA
     Dosage: 30.0MG UNKNOWN
     Route: 058
     Dates: start: 20200911, end: 20200911

REACTIONS (3)
  - Flushing [Recovered/Resolved]
  - Tachycardia [Recovered/Resolved]
  - Throat irritation [Unknown]

NARRATIVE: CASE EVENT DATE: 20200911
